FAERS Safety Report 17675084 (Version 1)
Quarter: 2020Q2

REPORT INFORMATION
  Report Type: Spontaneous
  Country: FR (occurrence: FR)
  Receive Date: 20200416
  Receipt Date: 20200416
  Transmission Date: 20200714
  Serious: Yes (Hospitalization)
  Sender: FDA-Public Use
  Company Number: NVSC2020FR102559

PATIENT
  Age: 67 Year
  Sex: Male

DRUGS (4)
  1. GENTAMICINE [Concomitant]
     Active Substance: GENTAMICIN
     Indication: SEPTIC ARTHRITIS STAPHYLOCOCCAL
     Route: 065
  2. OFLOXACIN. [Suspect]
     Active Substance: OFLOXACIN
     Indication: SEPTIC ARTHRITIS STAPHYLOCOCCAL
     Dosage: 240 MG, Q3H
     Route: 042
     Dates: start: 20191127, end: 20191213
  3. ORBENINE [Suspect]
     Active Substance: CLOXACILLIN SODIUM
     Indication: SEPTIC ARTHRITIS STAPHYLOCOCCAL
     Dosage: 2 G, Q4H
     Route: 042
     Dates: start: 20191122, end: 20191213
  4. VANCOMYCINE [Concomitant]
     Active Substance: VANCOMYCIN
     Indication: SEPTIC ARTHRITIS STAPHYLOCOCCAL
     Route: 065

REACTIONS (1)
  - Neutropenia [Not Recovered/Not Resolved]

NARRATIVE: CASE EVENT DATE: 20191127
